FAERS Safety Report 4767902-8 (Version None)
Quarter: 2005Q3

REPORT INFORMATION
  Report Type: 
  Country: None (occurrence: None)
  Receive Date: 20050913
  Receipt Date: 20050907
  Transmission Date: 20060218
  Serious: Yes (Hospitalization)
  Sender: FDA-Public Use
  Company Number: JP-MERCK-0509USA01090

PATIENT
  Age: 62 Year
  Sex: Male

DRUGS (4)
  1. DECADRON [Suspect]
     Indication: MANTLE CELL LYMPHOMA RECURRENT
     Route: 048
     Dates: start: 20040511
  2. VINCRISTINE SULFATE [Suspect]
     Indication: MANTLE CELL LYMPHOMA RECURRENT
     Route: 065
     Dates: start: 20040511
  3. CYCLOPHOSPHAMIDE [Suspect]
     Indication: MANTLE CELL LYMPHOMA RECURRENT
     Route: 065
     Dates: start: 20040511
  4. DOXORUBICIN [Suspect]
     Indication: MANTLE CELL LYMPHOMA RECURRENT
     Route: 065
     Dates: start: 20040511

REACTIONS (3)
  - CYTOMEGALOVIRUS ENTEROCOLITIS [None]
  - PNEUMONIA [None]
  - SEPTIC SHOCK [None]
